FAERS Safety Report 7223361-7 (Version None)
Quarter: 2011Q1

REPORT INFORMATION
  Report Type: 
  Country: None (occurrence: None)
  Receive Date: 20110112
  Receipt Date: 20100517
  Transmission Date: 20110831
  Serious: No
  Sender: FDA-Public Use
  Company Number: US-ALLERGAN-1006306US

PATIENT
  Sex: Female

DRUGS (3)
  1. RESTASIS [Suspect]
     Dosage: 1 GTT, QD
     Route: 047
  2. RESTASIS [Suspect]
     Indication: DRY EYE
     Dosage: 1 GTT, BID
     Route: 047
  3. SYSTANE [Concomitant]

REACTIONS (3)
  - ABNORMAL SENSATION IN EYE [None]
  - EYE PAIN [None]
  - EYE IRRITATION [None]
